FAERS Safety Report 6308227-9 (Version None)
Quarter: 2009Q3

REPORT INFORMATION
  Report Type: 
  Country: None (occurrence: None)
  Receive Date: 20090810
  Receipt Date: 20090730
  Transmission Date: 20100115
  Serious: Yes (Hospitalization)
  Sender: FDA-Public Use
  Company Number: FABR-11811

PATIENT
  Age: 52 Year
  Sex: Female
  Weight: 61 kg

DRUGS (21)
  1. FABRAZYME [Suspect]
     Indication: FABRY'S DISEASE
     Dosage: 35 MG, 1X/W, INTRAVENOUS; 70 MG, Q2W, INTRAVENOUS; 60 MG, Q2W, INTRAVENOUS; 65 MG, Q2W, INTRAVENOUS
     Route: 042
     Dates: start: 20030620, end: 20061201
  2. FABRAZYME [Suspect]
     Indication: FABRY'S DISEASE
     Dosage: 35 MG, 1X/W, INTRAVENOUS; 70 MG, Q2W, INTRAVENOUS; 60 MG, Q2W, INTRAVENOUS; 65 MG, Q2W, INTRAVENOUS
     Route: 042
     Dates: end: 20090701
  3. FABRAZYME [Suspect]
     Indication: FABRY'S DISEASE
     Dosage: 35 MG, 1X/W, INTRAVENOUS; 70 MG, Q2W, INTRAVENOUS; 60 MG, Q2W, INTRAVENOUS; 65 MG, Q2W, INTRAVENOUS
     Route: 042
     Dates: start: 20070113
  4. FABRAZYME [Suspect]
     Indication: FABRY'S DISEASE
     Dosage: 35 MG, 1X/W, INTRAVENOUS; 70 MG, Q2W, INTRAVENOUS; 60 MG, Q2W, INTRAVENOUS; 65 MG, Q2W, INTRAVENOUS
     Route: 042
     Dates: start: 20090718
  5. TACROLIMUS [Concomitant]
  6. VALGANCICLOVIR HCL [Concomitant]
  7. NPH INSULIN [Concomitant]
  8. SEPTRA [Concomitant]
  9. GABAPENTIN [Concomitant]
  10. LISPRO [Concomitant]
  11. LORATADINE [Concomitant]
  12. PREDNISONE TAB [Concomitant]
  13. FLUCONAZOLE [Concomitant]
  14. DIGOXIN [Concomitant]
  15. PROCRIT [Concomitant]
  16. LANSOPRAZOLE [Concomitant]
  17. LASIX [Concomitant]
  18. METOPROLOL SUCCINATE [Concomitant]
  19. MYCOPHENOLIC ACID [Concomitant]
  20. ATENOLOL [Concomitant]
  21. TYLENOL [Concomitant]

REACTIONS (7)
  - CARDIAC DISORDER [None]
  - CHEST PAIN [None]
  - DYSPNOEA [None]
  - INFUSION RELATED REACTION [None]
  - PULMONARY ARTERIAL PRESSURE INCREASED [None]
  - VENTRICULAR HYPERTROPHY [None]
  - WEIGHT DECREASED [None]
